FAERS Safety Report 11906412 (Version 1)
Quarter: 2016Q1

REPORT INFORMATION
  Report Type: Spontaneous
  Country: US (occurrence: None)
  Receive Date: 20160108
  Receipt Date: 20160108
  Transmission Date: 20160526
  Serious: Yes (Hospitalization, Other)
  Sender: FDA-Public Use
  Company Number: None

PATIENT
  Age: 8 Year
  Sex: Male
  Weight: 78 kg

DRUGS (1)
  1. RANITIDINE 15MG/ML (75MG/5ML) CARACO [Suspect]
     Active Substance: RANITIDINE HYDROCHLORIDE
     Indication: GASTROOESOPHAGEAL REFLUX DISEASE
     Route: 048
     Dates: start: 20151202, end: 20151211

REACTIONS (11)
  - Drug ineffective [None]
  - Headache [None]
  - Eructation [None]
  - Throat tightness [None]
  - Family stress [None]
  - Visual impairment [None]
  - Fear [None]
  - Neurological eyelid disorder [None]
  - Abdominal pain [None]
  - Oropharyngeal pain [None]
  - Seizure like phenomena [None]

NARRATIVE: CASE EVENT DATE: 20151211
